FAERS Safety Report 8220592-4 (Version None)
Quarter: 2012Q1

REPORT INFORMATION
  Report Type: 
  Country: None (occurrence: None)
  Receive Date: 20120307
  Receipt Date: 20100601
  Transmission Date: 20120608
  Serious: No
  Sender: FDA-Public Use
  Company Number: PHHY2010US36262

PATIENT
  Age: 73 Year
  Sex: Female

DRUGS (9)
  1. AFINITOR [Suspect]
     Dosage: 10MG, ORAL
     Route: 048
  2. NORVASC [Concomitant]
  3. JANUVIA [Concomitant]
  4. PRAVASTATIN [Concomitant]
  5. PROTONIX [Concomitant]
  6. METOPROLOL SUCCINATE [Concomitant]
  7. STARLIX [Concomitant]
  8. ASPIRIN [Concomitant]
  9. CIPRO [Concomitant]

REACTIONS (2)
  - OEDEMA PERIPHERAL [None]
  - URINARY TRACT INFECTION [None]
